FAERS Safety Report 7977379 (Version 3)
Quarter: 2013Q1

REPORT INFORMATION
  Report Type: Spontaneous
  Country: US (occurrence: None)
  Receive Date: 20110518
  Receipt Date: 20121127
  Transmission Date: 20140127
  Serious: Yes (Hospitalization, Other)
  Sender: FDA-Public Use
  Company Number: AUR-APL-2011-01552

PATIENT
  Age: 51 Year
  Sex: Female

DRUGS (3)
  1. SUMATRIPTAN SUCCINATE [Suspect]
  2. PIZOTYLINE [Suspect]
  3. ACETAMINOPHEN\CODEINE PHOSPHATE [Suspect]

REACTIONS (3)
  - BALINT^S SYNDROME [None]
  - CEREBRAL VASOCONSTRICTION [None]
  - HEADACHE [None]
